FAERS Safety Report 19457270 (Version 2)
Quarter: 2021Q3

REPORT INFORMATION
  Report Type: Spontaneous
  Country: CN (occurrence: CN)
  Receive Date: 20210624
  Receipt Date: 20210701
  Transmission Date: 20211014
  Serious: Yes (Other)
  Sender: FDA-Public Use
  Company Number: CN-BAYER-2021-163035

PATIENT
  Age: 59 Year
  Sex: Female

DRUGS (4)
  1. BETAHISTINE [Concomitant]
     Active Substance: BETAHISTINE
     Dosage: UNK
     Dates: start: 20200414, end: 20200501
  2. ENALAPRIL [Concomitant]
     Active Substance: ENALAPRIL
     Indication: HYPERTENSION
     Dosage: 10 MG, QD
     Route: 048
  3. LYSINE [Suspect]
     Active Substance: LYSINE
     Dosage: UNK
     Dates: start: 20200414, end: 20200421
  4. ULTRAVIST [Suspect]
     Active Substance: IOPROMIDE
     Indication: ANGIOGRAM
     Dosage: 60 ML, ONCE
     Route: 042
     Dates: start: 20200420, end: 20200420

REACTIONS (2)
  - Dermatitis exfoliative [Recovering/Resolving]
  - Contrast media allergy [Recovering/Resolving]

NARRATIVE: CASE EVENT DATE: 20200420
